FAERS Safety Report 18266186 (Version 1)
Quarter: 2020Q3

REPORT INFORMATION
  Report Type: Report from Study
  Country: None (occurrence: US)
  Receive Date: 20200915
  Receipt Date: 20200915
  Transmission Date: 20201103
  Serious: Yes (Other)
  Sender: FDA-Public Use
  Company Number: US-ABBVIE-20K-163-3564369-00

PATIENT
  Sex: Female

DRUGS (1)
  1. HUMIRA [Suspect]
     Active Substance: ADALIMUMAB
     Indication: PSORIASIS
     Dosage: CITRATE FREE
     Route: 058

REACTIONS (9)
  - Brain injury [Recovered/Resolved]
  - Diarrhoea [Recovered/Resolved]
  - Allergy to animal [Not Recovered/Not Resolved]
  - Food allergy [Not Recovered/Not Resolved]
  - Headache [Not Recovered/Not Resolved]
  - Crohn^s disease [Recovered/Resolved]
  - Psoriasis [Not Recovered/Not Resolved]
  - Road traffic accident [Recovered/Resolved]
  - Post-traumatic stress disorder [Not Recovered/Not Resolved]
